FAERS Safety Report 22533299 (Version 1)
Quarter: 2023Q2

REPORT INFORMATION
  Report Type: Spontaneous
  Country: JP (occurrence: JP)
  Receive Date: 20230607
  Receipt Date: 20230607
  Transmission Date: 20230722
  Serious: Yes (Other)
  Sender: FDA-Public Use
  Company Number: JP-002147023-NVSJ2023JP007419

PATIENT
  Sex: Female

DRUGS (10)
  1. ENTRESTO [Suspect]
     Active Substance: SACUBITRIL\VALSARTAN
     Indication: Cardiac failure
     Route: 048
  2. CANDESARTAN [Suspect]
     Active Substance: CANDESARTAN
     Indication: Product used for unknown indication
     Dosage: 4 MG, QD
     Route: 048
  3. FEBUXOSTAT [Concomitant]
     Active Substance: FEBUXOSTAT
     Indication: Product used for unknown indication
     Dosage: 10 MG, QD
     Route: 048
  4. FUROSEMIDE [Concomitant]
     Active Substance: FUROSEMIDE
     Indication: Product used for unknown indication
     Dosage: 40 MG, QD
     Route: 048
  5. JANUVIA [Concomitant]
     Active Substance: SITAGLIPTIN PHOSPHATE
     Indication: Product used for unknown indication
     Dosage: 50 MG, QD
     Route: 048
  6. JARDIANCE [Concomitant]
     Active Substance: EMPAGLIFLOZIN
     Indication: Product used for unknown indication
     Dosage: 10 MG, QD
     Route: 048
  7. LANSOPRAZOLE [Concomitant]
     Active Substance: LANSOPRAZOLE
     Indication: Product used for unknown indication
     Dosage: 15 MG, QD
     Route: 048
  8. CARVEDILOL [Concomitant]
     Active Substance: CARVEDILOL
     Indication: Product used for unknown indication
     Dosage: 10 MG, QD
     Route: 048
  9. BELSOMRA [Concomitant]
     Active Substance: SUVOREXANT
     Indication: Product used for unknown indication
     Dosage: 15 MG, QD
     Route: 048
  10. ETIZOLAM [Concomitant]
     Active Substance: ETIZOLAM
     Indication: Product used for unknown indication
     Dosage: 0.5 MG, QD
     Route: 048

REACTIONS (3)
  - Glomerular filtration rate decreased [Unknown]
  - Brain natriuretic peptide increased [Unknown]
  - Contraindicated product administered [Unknown]
